FAERS Safety Report 8928475 (Version 2)
Quarter: 2013Q1

REPORT INFORMATION
  Report Type: Spontaneous
  Country: IE (occurrence: IE)
  Receive Date: 20121128
  Receipt Date: 20130107
  Transmission Date: 20140127
  Serious: Yes (Hospitalization, Disabling)
  Sender: FDA-Public Use
  Company Number: PHFR2012IE006080

PATIENT
  Age: 54 None
  Sex: Male

DRUGS (1)
  1. CLOZARIL [Suspect]
     Indication: PSYCHOTIC DISORDER
     Dosage: 300 MG, UNK
     Route: 048
     Dates: start: 2010, end: 20121119

REACTIONS (5)
  - Ulcer [Unknown]
  - Weight decreased [Unknown]
  - Oesophageal carcinoma [Unknown]
  - White blood cell count increased [Unknown]
  - Neutrophil count increased [Unknown]
